FAERS Safety Report 7909029 (Version 3)
Quarter: 2013Q1

REPORT INFORMATION
  Report Type: Spontaneous
  Country: US (occurrence: US)
  Receive Date: 20110421
  Receipt Date: 20130226
  Transmission Date: 20140127
  Serious: Yes (Hospitalization)
  Sender: FDA-Public Use
  Company Number: US-US-EMD SERONO, INC.-7054283

PATIENT
  Age: 62 Year
  Sex: Female

DRUGS (2)
  1. REBIF [Suspect]
     Indication: MULTIPLE SCLEROSIS
     Route: 058
     Dates: start: 20070730
  2. PREDNISONE [Concomitant]
     Indication: PREMEDICATION

REACTIONS (3)
  - Cerebral infarction [Recovered/Resolved with Sequelae]
  - Intracranial aneurysm [Recovered/Resolved with Sequelae]
  - Blood pressure increased [Not Recovered/Not Resolved]
